FAERS Safety Report 5818746-7 (Version None)
Quarter: 2008Q3

REPORT INFORMATION
  Report Type: 
  Country: None (occurrence: None)
  Receive Date: 20080718
  Receipt Date: 20080718
  Transmission Date: 20090109
  Serious: Yes (Hospitalization)
  Sender: FDA-Public Use
  Company Number: None

PATIENT
  Sex: Female
  Weight: 46.2669 kg

DRUGS (8)
  1. TARCEVA [Suspect]
     Indication: NON-SMALL CELL LUNG CANCER
     Dosage: 100MG DAILY PO
     Route: 048
     Dates: start: 20080416, end: 20080605
  2. AVASTIN [Suspect]
     Dosage: 783 MG Q21DAYS IV
     Route: 042
     Dates: start: 20080416, end: 20080528
  3. SYNTHROID [Concomitant]
  4. LIPITO [Concomitant]
  5. MEGACE [Concomitant]
  6. COLACE [Concomitant]
  7. ZOFRAN [Concomitant]
  8. SENOKOT [Concomitant]

REACTIONS (5)
  - ANOREXIA [None]
  - ASTHENIA [None]
  - GENERAL PHYSICAL HEALTH DETERIORATION [None]
  - PLEURAL EFFUSION [None]
  - RESPIRATORY FAILURE [None]
